FAERS Safety Report 5875004-2 (Version None)
Quarter: 2008Q3

REPORT INFORMATION
  Report Type: 
  Country: None (occurrence: None)
  Receive Date: 20080909
  Receipt Date: 20080901
  Transmission Date: 20090109
  Serious: Yes (Life-Threatening)
  Sender: FDA-Public Use
  Company Number: JP-BAYER-200811812BYL

PATIENT
  Age: 77 Year
  Sex: Male
  Weight: 80 kg

DRUGS (8)
  1. NEXAVAR [Suspect]
     Indication: RENAL CELL CARCINOMA STAGE IV
     Dosage: UNIT DOSE: 200 MG
     Route: 048
     Dates: start: 20080715, end: 20080718
  2. NEXAVAR [Suspect]
     Dosage: UNIT DOSE: 200 MG
     Route: 048
     Dates: start: 20080720, end: 20080818
  3. LANSOPRAZOLE [Concomitant]
     Dosage: TOTAL DAILY DOSE: 15 MG  UNIT DOSE: 15 MG
     Route: 048
     Dates: start: 20060101
  4. ZOLOFT [Concomitant]
     Route: 048
     Dates: start: 20060101
  5. STOMILASE [Concomitant]
     Route: 048
     Dates: start: 20060101
  6. ZOMETA [Concomitant]
     Route: 041
     Dates: start: 20061228
  7. HUMALOG [Concomitant]
     Route: 058
     Dates: start: 20070101
  8. LANTUS [Concomitant]
     Route: 058
     Dates: start: 20070101

REACTIONS (2)
  - HYPOGLYCAEMIA [None]
  - PALMAR-PLANTAR ERYTHRODYSAESTHESIA SYNDROME [None]
